FAERS Safety Report 7568585-4 (Version None)
Quarter: 2011Q2

REPORT INFORMATION
  Report Type: 
  Country: None (occurrence: None)
  Receive Date: 20110623
  Receipt Date: 20110613
  Transmission Date: 20111010
  Serious: Yes (Life-Threatening)
  Sender: FDA-Public Use
  Company Number: US-JNJFOC-20100805039

PATIENT
  Sex: Male
  Weight: 81.19 kg

DRUGS (2)
  1. REMICADE [Suspect]
     Indication: CROHN'S DISEASE
     Route: 042
     Dates: start: 20040216
  2. REMICADE [Suspect]
     Route: 042
     Dates: start: 20100812

REACTIONS (7)
  - TACHYCARDIA [None]
  - DRUG HYPERSENSITIVITY [None]
  - MUSCLE SPASMS [None]
  - BACK PAIN [None]
  - INFUSION RELATED REACTION [None]
  - PYREXIA [None]
  - CHILLS [None]
